FAERS Safety Report 13413243 (Version 4)
Quarter: 2017Q4

REPORT INFORMATION
  Report Type: Spontaneous
  Country: US (occurrence: US)
  Receive Date: 20170407
  Receipt Date: 20171229
  Transmission Date: 20180320
  Serious: Yes (Other)
  Sender: FDA-Public Use
  Company Number: US-TEVA-755825ACC

PATIENT
  Age: 34 Year
  Sex: Female
  Weight: 79.45 kg

DRUGS (1)
  1. PARAGARD T 380A [Suspect]
     Active Substance: COPPER
     Indication: CONTRACEPTION
     Dates: start: 20160705, end: 20170309

REACTIONS (4)
  - Pregnancy on contraceptive [Unknown]
  - Menstruation delayed [Not Recovered/Not Resolved]
  - Abortion induced [Unknown]
  - Exposure during pregnancy [Unknown]

NARRATIVE: CASE EVENT DATE: 20170125
